FAERS Safety Report 4999794-6 (Version None)
Quarter: 2006Q2

REPORT INFORMATION
  Report Type: 
  Country: None (occurrence: None)
  Receive Date: 20060509
  Receipt Date: 20060509
  Transmission Date: 20061013
  Serious: Yes (Hospitalization)
  Sender: FDA-Public Use
  Company Number: None

PATIENT
  Age: 59 Year
  Sex: Male
  Weight: 66.2252 kg

DRUGS (3)
  1. ERBITUX [Suspect]
     Indication: TONSIL CANCER
     Dosage: 250MG, ONCE/WEEK  IV
     Route: 042
     Dates: start: 20050826, end: 20050920
  2. CARBOPLATIN + TAXOL [Concomitant]
  3. RADIATION THERAPY [Concomitant]

REACTIONS (10)
  - ASTHENIA [None]
  - CELLULITIS [None]
  - ERYTHEMA [None]
  - FEEDING TUBE COMPLICATION [None]
  - FEELING COLD [None]
  - MALAISE [None]
  - NAUSEA [None]
  - PAIN [None]
  - PYREXIA [None]
  - VOMITING [None]
